FAERS Safety Report 19782557 (Version 1)
Quarter: 2021Q3

REPORT INFORMATION
  Report Type: Spontaneous
  Country: US (occurrence: US)
  Receive Date: 20210902
  Receipt Date: 20210902
  Transmission Date: 20211014
  Serious: No
  Sender: FDA-Public Use
  Company Number: US-LUPIN PHARMACEUTICALS INC.-2021-16146

PATIENT
  Age: 20 Year
  Sex: Male

DRUGS (9)
  1. BETAMETHASONE OINTMENT [Suspect]
     Active Substance: BETAMETHASONE
     Indication: HAIR COLOUR CHANGES
  2. GINGKO BILOBA [Suspect]
     Active Substance: GINKGO
     Indication: MELANOCYTIC NAEVUS
  3. GINGKO BILOBA [Suspect]
     Active Substance: GINKGO
     Indication: VITILIGO
     Dosage: 60 MILLIGRAM, BID
     Route: 065
  4. ALPHA LIPOIC ACID [Suspect]
     Active Substance: .ALPHA.-LIPOIC ACID
     Indication: HAIR COLOUR CHANGES
  5. BETAMETHASONE OINTMENT [Suspect]
     Active Substance: BETAMETHASONE
     Indication: VITILIGO
     Dosage: UNK UNK, BID
     Route: 061
  6. BETAMETHASONE OINTMENT [Suspect]
     Active Substance: BETAMETHASONE
     Indication: MELANOCYTIC NAEVUS
  7. GINGKO BILOBA [Suspect]
     Active Substance: GINKGO
     Indication: HAIR COLOUR CHANGES
  8. ALPHA LIPOIC ACID [Suspect]
     Active Substance: .ALPHA.-LIPOIC ACID
     Indication: VITILIGO
     Dosage: 100 MILLIGRAM, QD
     Route: 065
  9. ALPHA LIPOIC ACID [Suspect]
     Active Substance: .ALPHA.-LIPOIC ACID
     Indication: MELANOCYTIC NAEVUS

REACTIONS (1)
  - Drug ineffective [Unknown]
